FAERS Safety Report 9554142 (Version 1)
Quarter: 2013Q3

REPORT INFORMATION
  Report Type: Spontaneous
  Country: US (occurrence: None)
  Receive Date: 20130815
  Receipt Date: 20130815
  Transmission Date: 20140515
  Serious: No
  Sender: FDA-Public Use
  Company Number: ADR-2013-00879

PATIENT
  Age: 39 Year
  Sex: Female

DRUGS (2)
  1. LIORESAL INTRATHECAL (BACLOFEN INJECTION) 2000 MCG/ML [Suspect]
     Indication: MUSCLE SPASTICITY
  2. ORAL BACLOFEN [Concomitant]

REACTIONS (1)
  - Drug withdrawal syndrome [None]
